FAERS Safety Report 8558778-1 (Version None)
Quarter: 2012Q3

REPORT INFORMATION
  Report Type: 
  Country: None (occurrence: None)
  Receive Date: 20120801
  Receipt Date: 20120731
  Transmission Date: 20120928
  Serious: Yes (Hospitalization)
  Sender: FDA-Public Use
  Company Number: US-009507513-2012SP030917

PATIENT

DRUGS (2)
  1. KYTRIL [Concomitant]
     Dosage: UPDATE (19JUN2012): TABS 2'S
  2. TEMODAR [Suspect]
     Indication: BRAIN NEOPLASM
     Dosage: 140 MG, QD
     Route: 048
     Dates: start: 20120212, end: 20120301

REACTIONS (2)
  - URINARY RETENTION [None]
  - CONSTIPATION [None]
